FAERS Safety Report 23392092 (Version 1)
Quarter: 2024Q1

REPORT INFORMATION
  Report Type: Spontaneous
  Country: US (occurrence: None)
  Receive Date: 20240110
  Receipt Date: 20240110
  Transmission Date: 20240410
  Serious: Yes (Hospitalization)
  Sender: FDA-Public Use
  Company Number: None

PATIENT
  Age: 22 Year
  Sex: Male

DRUGS (2)
  1. STIVARGA [Suspect]
     Active Substance: REGORAFENIB
     Indication: Malignant connective tissue neoplasm
     Dosage: STIVARGA 80MG EVERY OTHER DAY ALTERNATING WITH 120MG EVERY OTHER DAY
     Route: 048
     Dates: start: 202311
  2. STIVARGA [Suspect]
     Active Substance: REGORAFENIB
     Indication: Metastasis

REACTIONS (1)
  - Pneumothorax [None]

NARRATIVE: CASE EVENT DATE: 20231117
